FAERS Safety Report 22342415 (Version 1)
Quarter: 2023Q2

REPORT INFORMATION
  Report Type: Spontaneous
  Country: JP (occurrence: JP)
  Receive Date: 20230519
  Receipt Date: 20230519
  Transmission Date: 20230721
  Serious: Yes (Other)
  Sender: FDA-Public Use
  Company Number: JP-KISSEI-TV20230211_P_1

PATIENT
  Age: 9 Decade
  Sex: Female

DRUGS (2)
  1. TAVNEOS [Suspect]
     Active Substance: AVACOPAN
     Indication: Microscopic polyangiitis
     Dosage: UNK
     Route: 048
     Dates: start: 202301, end: 202304
  2. RITUXIMAB [Concomitant]
     Active Substance: RITUXIMAB
     Indication: Microscopic polyangiitis
     Dosage: UNK
     Route: 040

REACTIONS (1)
  - Interstitial lung disease [Recovering/Resolving]

NARRATIVE: CASE EVENT DATE: 20230101
